FAERS Safety Report 16008334 (Version 2)
Quarter: 2019Q1

REPORT INFORMATION
  Report Type: Report from Study
  Country: None (occurrence: US)
  Receive Date: 20190225
  Receipt Date: 20190324
  Transmission Date: 20190418
  Serious: No
  Sender: FDA-Public Use
  Company Number: US-ABBVIE-19K-163-2676740-00

PATIENT
  Age: 49 Year
  Sex: Male
  Weight: 101.24 kg

DRUGS (3)
  1. HUMIRA [Suspect]
     Active Substance: ADALIMUMAB
     Indication: COLITIS ULCERATIVE
     Dosage: DAY 1
     Route: 058
     Dates: start: 201809, end: 201809
  2. HUMIRA [Suspect]
     Active Substance: ADALIMUMAB
     Dosage: DAY 29
     Route: 058
     Dates: start: 201809
  3. HUMIRA [Suspect]
     Active Substance: ADALIMUMAB
     Dosage: DAY 15
     Route: 058
     Dates: start: 201809, end: 201809

REACTIONS (8)
  - Dizziness [Recovered/Resolved]
  - Insomnia [Unknown]
  - Fall [Recovered/Resolved]
  - Presyncope [Recovered/Resolved]
  - Abnormal faeces [Unknown]
  - Injection site pruritus [Unknown]
  - Injection site reaction [Unknown]
  - Dehydration [Recovered/Resolved]

NARRATIVE: CASE EVENT DATE: 201812
